FAERS Safety Report 15457023 (Version 1)
Quarter: 2018Q4

REPORT INFORMATION
  Report Type: Spontaneous
  Country: DE (occurrence: DE)
  Receive Date: 20181002
  Receipt Date: 20181002
  Transmission Date: 20190204
  Serious: Yes (Other)
  Sender: FDA-Public Use
  Company Number: DE-PFM-2018-11936

PATIENT

DRUGS (5)
  1. METOPROLOL. [Suspect]
     Active Substance: METOPROLOL
     Indication: PRODUCT USED FOR UNKNOWN INDICATION
     Dosage: 47.5 UNK, UNK
     Route: 065
     Dates: start: 201504
  2. STUDY MEDICATION NOT GIVEN [Suspect]
     Active Substance: UNSPECIFIED INGREDIENT
     Indication: PRODUCT USED FOR UNKNOWN INDICATION
     Route: 065
  3. TOPIRAMAT [Suspect]
     Active Substance: TOPIRAMATE
     Indication: PRODUCT USED FOR UNKNOWN INDICATION
     Dosage: UNK
     Route: 065
     Dates: start: 201705
  4. MIRENA [Suspect]
     Active Substance: LEVONORGESTREL
     Indication: CHEMICAL CONTRACEPTION
     Dosage: 20 MCG/24HR, CONTINUOUS
     Route: 015
     Dates: start: 2012, end: 20170710
  5. PROPRANOLOL [Suspect]
     Active Substance: PROPRANOLOL HYDROCHLORIDE
     Indication: PRODUCT USED FOR UNKNOWN INDICATION
     Route: 065

REACTIONS (4)
  - Off label use [Unknown]
  - Deep vein thrombosis [Unknown]
  - Pain in extremity [Unknown]
  - Product use issue [Unknown]

NARRATIVE: CASE EVENT DATE: 20170601
